FAERS Safety Report 13303592 (Version 5)
Quarter: 2018Q1

REPORT INFORMATION
  Report Type: Report from Study
  Country: US (occurrence: US)
  Receive Date: 20170307
  Receipt Date: 20180103
  Transmission Date: 20180508
  Serious: Yes (Hospitalization)
  Sender: FDA-Public Use
  Company Number: US-ACTELION-A-NJ2015-113810

PATIENT
  Age: 55 Year
  Sex: Male
  Weight: 93.42 kg

DRUGS (10)
  1. ADCIRCA [Suspect]
     Active Substance: TADALAFIL
     Indication: PRODUCT USED FOR UNKNOWN INDICATION
     Route: 065
  2. COUMADIN [Concomitant]
     Active Substance: WARFARIN SODIUM
  3. TRACLEER [Suspect]
     Active Substance: BOSENTAN
     Dosage: UNK
     Route: 048
  4. ADEMPAS [Suspect]
     Active Substance: RIOCIGUAT
     Dosage: UNK UNK, TID
     Route: 065
     Dates: start: 201606
  5. ADEMPAS [Suspect]
     Active Substance: RIOCIGUAT
     Dosage: 1.5 MG, TID
     Route: 065
  6. TRACLEER [Suspect]
     Active Substance: BOSENTAN
     Indication: PULMONARY ARTERIAL HYPERTENSION
     Dosage: 125 MG, BID
     Route: 048
     Dates: start: 20110119
  7. LYRICA [Suspect]
     Active Substance: PREGABALIN
     Indication: PRODUCT USED FOR UNKNOWN INDICATION
     Route: 065
  8. REVATIO [Concomitant]
     Active Substance: SILDENAFIL CITRATE
  9. ADEMPAS [Suspect]
     Active Substance: RIOCIGUAT
     Indication: PRODUCT USED FOR UNKNOWN INDICATION
     Dosage: UNK UNK, BID
     Route: 065
  10. OXYGEN. [Concomitant]
     Active Substance: OXYGEN
     Dosage: 3 L/MIN, UNK

REACTIONS (17)
  - Influenza [Unknown]
  - Pain [Unknown]
  - Lacrimation increased [Unknown]
  - Nasal congestion [Unknown]
  - Confusional state [Unknown]
  - Sleep apnoea syndrome [Unknown]
  - Nausea [Unknown]
  - Syncope [Unknown]
  - Back pain [Unknown]
  - Neck pain [Unknown]
  - Malaise [Unknown]
  - Tooth extraction [Unknown]
  - Headache [Unknown]
  - Vomiting [Unknown]
  - Musculoskeletal stiffness [Unknown]
  - Fall [Unknown]
  - Dyspnoea [Unknown]

NARRATIVE: CASE EVENT DATE: 20160109
